FAERS Safety Report 5067904-0 (Version None)
Quarter: 2006Q3

REPORT INFORMATION
  Report Type: 
  Country: None (occurrence: None)
  Receive Date: 20060802
  Receipt Date: 20060706
  Transmission Date: 20061208
  Serious: Yes (Other)
  Sender: FDA-Public Use
  Company Number: 2006UW14115

PATIENT
  Age: 44 Year
  Sex: Male

DRUGS (1)
  1. MERREM [Suspect]
     Indication: OSTEITIS
     Route: 042

REACTIONS (2)
  - GYNAECOMASTIA [None]
  - PAIN [None]
